FAERS Safety Report 9492041 (Version 1)
Quarter: 2013Q3

REPORT INFORMATION
  Report Type: Spontaneous
  Country: GB (occurrence: GB)
  Receive Date: 20130830
  Receipt Date: 20130830
  Transmission Date: 20140515
  Serious: Yes (Other)
  Sender: FDA-Public Use
  Company Number: PHFR2013GB004898

PATIENT
  Age: 9 Year
  Sex: Female

DRUGS (2)
  1. EXJADE [Suspect]
     Indication: IRON OVERLOAD
     Dosage: UNK UKN, UNK
     Route: 048
  2. EXJADE [Suspect]
     Dosage: UNK UKN, UNK
     Route: 048

REACTIONS (1)
  - Intra-abdominal haemorrhage [Recovered/Resolved]
